FAERS Safety Report 8564103-2 (Version None)
Quarter: 2012Q3

REPORT INFORMATION
  Report Type: 
  Country: None (occurrence: None)
  Receive Date: 20120723
  Receipt Date: 20120710
  Transmission Date: 20120928
  Serious: Yes (Hospitalization)
  Sender: FDA-Public Use
  Company Number: ALK_02591_2012

PATIENT
  Sex: Female

DRUGS (1)
  1. VIVITROL [Suspect]
     Indication: PRODUCT USED FOR UNKNOWN INDICATION
     Dosage: 380 MG 1X/MONTH, INTRAMUSCULAR
     Route: 030

REACTIONS (2)
  - INJECTION SITE ABSCESS [None]
  - INJECTION SITE INFECTION [None]
